FAERS Safety Report 19963880 (Version 1)
Quarter: 2021Q4

REPORT INFORMATION
  Report Type: Spontaneous
  Country: US (occurrence: US)
  Receive Date: 20211018
  Receipt Date: 20211018
  Transmission Date: 20220303
  Serious: Yes (Other)
  Sender: FDA-Public Use
  Company Number: US-GLAXOSMITHKLINE- US2021GSK214150

PATIENT
  Sex: Female

DRUGS (14)
  1. ZANTAC [Suspect]
     Active Substance: RANITIDINE HYDROCHLORIDE
     Indication: Urticaria
     Dosage: 150 MG, QD
     Route: 065
     Dates: start: 200810, end: 202004
  2. ZANTAC [Suspect]
     Active Substance: RANITIDINE HYDROCHLORIDE
     Indication: Urticaria
  3. ZANTAC [Suspect]
     Active Substance: RANITIDINE HYDROCHLORIDE
     Indication: Urticaria
     Dosage: 150 MG, QD
     Route: 065
     Dates: start: 200810, end: 202004
  4. ZANTAC [Suspect]
     Active Substance: RANITIDINE HYDROCHLORIDE
     Indication: Urticaria
  5. RANITIDINE [Suspect]
     Active Substance: RANITIDINE
     Indication: Urticaria
     Dosage: 300 MG, QD
     Route: 065
     Dates: start: 200810, end: 202004
  6. RANITIDINE [Suspect]
     Active Substance: RANITIDINE
     Indication: Urticaria
  7. RANITIDINE [Suspect]
     Active Substance: RANITIDINE
     Indication: Urticaria
     Dosage: 300 MG, QD
     Route: 065
     Dates: start: 200810, end: 202004
  8. RANITIDINE [Suspect]
     Active Substance: RANITIDINE
     Indication: Urticaria
  9. ZANTAC [Suspect]
     Active Substance: RANITIDINE HYDROCHLORIDE
     Indication: Urticaria
     Dosage: 150 MG, QD
     Route: 065
     Dates: start: 200810, end: 202004
  10. ZANTAC [Suspect]
     Active Substance: RANITIDINE HYDROCHLORIDE
     Indication: Urticaria
  11. RANITIDINE [Suspect]
     Active Substance: RANITIDINE
     Indication: Urticaria
     Dosage: 150 MG, QD
     Route: 065
     Dates: start: 200810, end: 202004
  12. RANITIDINE [Suspect]
     Active Substance: RANITIDINE
     Indication: Urticaria
     Dosage: 300 MG, QD
     Route: 065
     Dates: start: 200810, end: 202004
  13. RANITIDINE [Suspect]
     Active Substance: RANITIDINE
     Indication: Urticaria
     Dosage: 300 MG, QD
     Route: 065
     Dates: start: 200810, end: 202004
  14. RANITIDINE [Suspect]
     Active Substance: RANITIDINE
     Indication: Urticaria

REACTIONS (3)
  - Breast cancer [Unknown]
  - Hepatic cirrhosis [Unknown]
  - Hepatic lesion [Unknown]
